FAERS Safety Report 7622054 (Version 4)
Quarter: 2013Q2

REPORT INFORMATION
  Report Type: Report from Study
  Country: US (occurrence: US)
  Receive Date: 20101008
  Receipt Date: 20130502
  Transmission Date: 20140414
  Serious: Yes (Hospitalization)
  Sender: FDA-Public Use
  Company Number: US-JNJFOC-20101000865

PATIENT
  Age: 16 Year
  Sex: Male
  Weight: 45.5 kg

DRUGS (6)
  1. INFLIXIMAB, RECOMBINANT [Suspect]
     Indication: INFLAMMATORY BOWEL DISEASE
     Route: 042
     Dates: start: 20060101
  2. INFLIXIMAB, RECOMBINANT [Suspect]
     Indication: INFLAMMATORY BOWEL DISEASE
     Route: 042
     Dates: start: 20100913
  3. METHOTREXATE [Concomitant]
  4. ANTIBIOTICS [Concomitant]
     Indication: INFLAMMATORY BOWEL DISEASE
  5. HUMIRA [Concomitant]
     Route: 065
     Dates: start: 20070101, end: 20070901
  6. PREDNISONE [Concomitant]
     Route: 065

REACTIONS (1)
  - Pelvic abscess [Recovered/Resolved]
